FAERS Safety Report 6176744-0 (Version None)
Quarter: 2009Q2

REPORT INFORMATION
  Report Type: 
  Country: None (occurrence: None)
  Receive Date: 20090501
  Receipt Date: 20080430
  Transmission Date: 20091009
  Serious: Yes (Hospitalization, Other)
  Sender: FDA-Public Use
  Company Number: US-ALEXION-A200800037

PATIENT

DRUGS (23)
  1. SOLIRIS [Suspect]
     Indication: PAROXYSMAL NOCTURNAL HAEMOGLOBINURIA
     Dosage: 600 MG, SINGLE
     Route: 042
     Dates: start: 20071219, end: 20071219
  2. SOLIRIS [Suspect]
     Dosage: 600 MG, SINGLE
     Route: 042
     Dates: start: 20071226, end: 20071226
  3. SOLIRIS [Suspect]
     Dosage: 600 MG, SINGLE
     Route: 042
     Dates: start: 20080102, end: 20080102
  4. SOLIRIS [Suspect]
     Dosage: 600 MG, SINGLE
     Route: 042
     Dates: start: 20080109, end: 20080109
  5. SOLIRIS [Suspect]
     Dosage: 900 MG, SINGLE
     Route: 042
     Dates: start: 20080116, end: 20080116
  6. SOLIRIS [Suspect]
     Dosage: 900 MG, SINGLE
     Route: 042
     Dates: start: 20080130, end: 20080130
  7. SOLIRIS [Suspect]
     Dosage: 900 MG, SINGLE
     Route: 042
     Dates: start: 20080213, end: 20080213
  8. SOLIRIS [Suspect]
     Dosage: 900 MG, SINGLE
     Route: 042
     Dates: start: 20080227, end: 20080227
  9. SOLIRIS [Suspect]
     Dosage: 900 MG, SINGLE
     Route: 042
     Dates: start: 20080312, end: 20080312
  10. SOLIRIS [Suspect]
     Dosage: 900 MG, SINGLE
     Route: 042
     Dates: start: 20080326, end: 20080326
  11. SOLIRIS [Suspect]
     Dosage: 900 MG, SINGLE
     Route: 042
     Dates: start: 20080409, end: 20080409
  12. COREG [Concomitant]
     Dosage: 25 MG, QD
     Route: 048
  13. PREDNISONE [Concomitant]
     Dosage: 5 MG, QD
     Route: 048
  14. COUMADIN [Concomitant]
     Indication: THROMBOSIS PROPHYLAXIS
     Dosage: 5 MG, QD
     Route: 048
  15. ZOCOR [Concomitant]
     Dosage: 10 MG, QD
     Route: 048
  16. FOLIC ACID [Concomitant]
     Indication: PAROXYSMAL NOCTURNAL HAEMOGLOBINURIA
     Dosage: 1 MG, UNK
     Route: 048
  17. FLOMAX [Concomitant]
     Dosage: .4 MG, QD
     Route: 048
  18. ISODIL [Concomitant]
     Dosage: 30 MG, QD
     Route: 048
  19. LASIX [Concomitant]
     Dosage: 40 MG, QD
     Route: 048
  20. NEXIUM [Concomitant]
     Dosage: 40 MG, BID
     Route: 048
  21. ALDACTONE [Concomitant]
     Dosage: 12.5 MG, QD
     Route: 048
  22. LANOXIN [Concomitant]
     Dosage: 125 UG, QD
     Route: 048
  23. PROSCAR [Concomitant]
     Dosage: UNK, QD
     Route: 048

REACTIONS (4)
  - BLOOD GLUCOSE INCREASED [None]
  - CARDIAC FAILURE CONGESTIVE [None]
  - CONDITION AGGRAVATED [None]
  - GALLBLADDER DISORDER [None]
